FAERS Safety Report 12191950 (Version 5)
Quarter: 2016Q3

REPORT INFORMATION
  Report Type: Spontaneous
  Country: JP (occurrence: JP)
  Receive Date: 20160318
  Receipt Date: 20160706
  Transmission Date: 20161109
  Serious: Yes (Hospitalization)
  Sender: FDA-Public Use
  Company Number: JP-PFIZER INC-2016159530

PATIENT
  Age: 87 Year
  Sex: Male

DRUGS (19)
  1. CEROCRAL [Suspect]
     Active Substance: IFENPRODIL
     Indication: CEREBRAL INFARCTION
     Dosage: 60 MG, UNK
     Route: 048
     Dates: start: 20151002, end: 20160202
  2. MAGMITT [Concomitant]
     Active Substance: MAGNESIUM OXIDE
     Indication: CONSTIPATION
     Dosage: 1980 MG, DAILY
     Route: 048
     Dates: start: 20110609
  3. VESICARE [Concomitant]
     Active Substance: SOLIFENACIN SUCCINATE
     Indication: HYPERTONIC BLADDER
     Dosage: 2.5 MG, DAILY
     Route: 048
     Dates: start: 20120717
  4. DAIKENCHUTO [Concomitant]
     Active Substance: HERBALS
     Indication: CONSTIPATION
     Dosage: 3 DF, DAILY
     Route: 048
     Dates: start: 20111222
  5. DAIKENCHUTO [Concomitant]
     Active Substance: HERBALS
     Indication: CONSTIPATION
  6. BONALON [Concomitant]
     Active Substance: ALENDRONATE SODIUM
     Indication: OSTEOPOROSIS
     Dosage: 35 MG, DAILY
     Route: 048
     Dates: start: 20120516
  7. ALESION [Concomitant]
     Active Substance: EPINASTINE HYDROCHLORIDE
     Dosage: UNK
     Dates: start: 20160127
  8. RIVASTACH [Concomitant]
     Active Substance: RIVASTIGMINE
     Indication: DEMENTIA
     Dosage: 9 MG, DAILY
     Route: 062
     Dates: start: 20160212
  9. AMLODIN [Suspect]
     Active Substance: AMLODIPINE BESYLATE
     Indication: BLOOD PRESSURE ABNORMAL
     Dosage: 2.5 MG, UNK
     Route: 048
     Dates: start: 20130306, end: 20130507
  10. GASMOTIN [Concomitant]
     Active Substance: MOSAPRIDE CITRATE
     Indication: CHRONIC GASTRITIS
     Dosage: 15 MG, DAILY
     Route: 048
     Dates: start: 20110609
  11. FLIVAS [Concomitant]
     Active Substance: NAFTOPIDIL
     Indication: BENIGN PROSTATIC HYPERPLASIA
     Dosage: 75 MG, DAILY
     Route: 048
     Dates: start: 20120717
  12. ZANTAC [Concomitant]
     Active Substance: RANITIDINE HYDROCHLORIDE
     Indication: GASTROOESOPHAGEAL REFLUX DISEASE
     Dosage: 300 MG, DAILY
     Route: 048
     Dates: start: 20110609
  13. DAIKENCHUTO [Concomitant]
     Active Substance: HERBALS
     Indication: INTESTINAL OBSTRUCTION
  14. MYSER [Concomitant]
     Active Substance: DIFLUPREDNATE
     Dosage: UNK
     Dates: start: 20160127
  15. EDIROL [Concomitant]
     Active Substance: ELDECALCITOL
     Indication: OSTEOPOROSIS
     Dosage: 0.75 UG, DAILY
     Route: 048
     Dates: start: 20140422
  16. AMLODIN [Suspect]
     Active Substance: AMLODIPINE BESYLATE
     Dosage: 2.5 MG, DAILY
     Route: 048
     Dates: start: 20160109, end: 20160131
  17. CASODEX [Concomitant]
     Active Substance: BICALUTAMIDE
     Indication: PROSTATE CANCER
     Dosage: 80 MG, DAILY
     Route: 048
     Dates: start: 20101121
  18. DAIKENCHUTO [Concomitant]
     Active Substance: HERBALS
     Indication: INTESTINAL OBSTRUCTION
  19. MERISLON [Concomitant]
     Active Substance: BETAHISTINE MESILATE
     Indication: DIZZINESS
     Dosage: 12 MG, DAILY
     Route: 048
     Dates: start: 20151127

REACTIONS (1)
  - Lichen planus [Recovered/Resolved]

NARRATIVE: CASE EVENT DATE: 201601
